FAERS Safety Report 25066196 (Version 1)
Quarter: 2025Q1

REPORT INFORMATION
  Report Type: Report from Study
  Country: JP (occurrence: JP)
  Receive Date: 20250312
  Receipt Date: 20250312
  Transmission Date: 20250409
  Serious: Yes (Other)
  Sender: ROCHE
  Company Number: JP-CHUGAI-2023046661

PATIENT
  Age: 71 Year
  Sex: Female
  Weight: 54.0 kg

DRUGS (1)
  1. TECENTRIQ [Suspect]
     Active Substance: ATEZOLIZUMAB
     Indication: Non-small cell lung cancer
     Route: 042
     Dates: start: 20231018, end: 20231018

REACTIONS (1)
  - Hepatobiliary disease [Recovering/Resolving]

NARRATIVE: CASE EVENT DATE: 20231106
